FAERS Safety Report 19278931 (Version 1)
Quarter: 2021Q2

REPORT INFORMATION
  Report Type: Spontaneous
  Country: US (occurrence: US)
  Receive Date: 20210520
  Receipt Date: 20210520
  Transmission Date: 20210717
  Serious: Yes (Other)
  Sender: FDA-Public Use
  Company Number: US-MYLANLABS-2021M1029373

PATIENT
  Sex: Female

DRUGS (14)
  1. CARBOPLATIN. [Suspect]
     Active Substance: CARBOPLATIN
     Indication: CHORDOMA
     Dosage: UNK
     Route: 065
  2. DOXORUBICIN [Suspect]
     Active Substance: DOXORUBICIN
     Indication: METASTATIC NEOPLASM
  3. ACTINOMYCIN D [Suspect]
     Active Substance: DACTINOMYCIN
     Indication: CHORDOMA
     Dosage: AS PART OF THE IVA REGIMEN
     Route: 065
  4. VINCRISTINE [Suspect]
     Active Substance: VINCRISTINE
     Indication: CHORDOMA
     Dosage: AS PART OF THE IVA REGIMEN
     Route: 065
  5. ETOPOSIDE. [Suspect]
     Active Substance: ETOPOSIDE
     Indication: METASTATIC NEOPLASM
  6. IFOSFAMIDE. [Suspect]
     Active Substance: IFOSFAMIDE
     Indication: CHORDOMA
     Dosage: AS PART OF THE IVA REGIMEN
     Route: 065
  7. IMATINIB. [Suspect]
     Active Substance: IMATINIB MESYLATE
     Indication: CHORDOMA
     Dosage: DOSE: 337 MG/M2/DOSE
     Route: 048
  8. ETOPOSIDE. [Suspect]
     Active Substance: ETOPOSIDE
     Indication: CHORDOMA
     Dosage: UNK UNK, CYCLE
     Route: 065
  9. IMATINIB. [Suspect]
     Active Substance: IMATINIB MESYLATE
     Indication: METASTATIC NEOPLASM
  10. ETOPOSIDE. [Suspect]
     Active Substance: ETOPOSIDE
     Indication: METASTATIC NEOPLASM
  11. ETOPOSIDE. [Suspect]
     Active Substance: ETOPOSIDE
     Indication: CHORDOMA
     Dosage: UNK
     Route: 048
  12. CARBOPLATIN. [Suspect]
     Active Substance: CARBOPLATIN
     Indication: METASTATIC NEOPLASM
  13. DOXORUBICIN [Suspect]
     Active Substance: DOXORUBICIN
     Indication: CHORDOMA
     Dosage: AS PART OF THE IVADO REGIMEN, CYCLE
     Route: 065
  14. IFOSFAMIDE. [Suspect]
     Active Substance: IFOSFAMIDE
     Indication: METASTATIC NEOPLASM

REACTIONS (2)
  - Neutropenia [Recovered/Resolved]
  - Drug ineffective [Unknown]
